FAERS Safety Report 8049112-4 (Version None)
Quarter: 2012Q1

REPORT INFORMATION
  Report Type: 
  Country: None (occurrence: None)
  Receive Date: 20120117
  Receipt Date: 20120107
  Transmission Date: 20120608
  Serious: Yes (Other)
  Sender: FDA-Public Use
  Company Number: BR-JNJFOC-20120104130

PATIENT
  Sex: Male
  Weight: 15 kg

DRUGS (5)
  1. DIPYRONE INJ [Suspect]
     Indication: PYREXIA
     Dosage: 15 DROPS AT 17PM
     Route: 048
     Dates: start: 20120105
  2. AZITHROMYCIN [Suspect]
     Indication: OROPHARYNGEAL PAIN
     Route: 048
     Dates: start: 20120105
  3. ACETAMINOPHEN [Suspect]
     Route: 048
  4. ACETAMINOPHEN [Suspect]
     Indication: PYREXIA
     Dosage: 15 DROPS AT 12 NOON AND 15 DROPS AT 18 PM
     Route: 048
     Dates: start: 20120105
  5. CALADRYL [Suspect]
     Indication: VARICELLA
     Dosage: USED 2 TO 3 TIMES A DAY
     Route: 061
     Dates: start: 20120105

REACTIONS (4)
  - OVERDOSE [None]
  - PYREXIA [None]
  - OFF LABEL USE [None]
  - APPLICATION SITE ERYTHEMA [None]
